FAERS Safety Report 22967481 (Version 6)
Quarter: 2023Q4

REPORT INFORMATION
  Report Type: Spontaneous
  Country: US (occurrence: US)
  Receive Date: 20230921
  Receipt Date: 20231220
  Transmission Date: 20240110
  Serious: Yes (Other)
  Sender: FDA-Public Use
  Company Number: US-BRISTOL-MYERS SQUIBB COMPANY-2023-134044

PATIENT
  Age: 72 Year
  Sex: Female

DRUGS (3)
  1. LENALIDOMIDE [Suspect]
     Active Substance: LENALIDOMIDE
     Indication: Plasma cell myeloma
     Dosage: FREQ:  EVERY DAY ON DAYS 1-14 OF EACH 21 DAY CYCLE?TAKE 1 CAPSULE BY MOUTH EVERY DAY ON DAYS 1-14 OF
     Route: 048
     Dates: start: 20230828
  2. LENALIDOMIDE [Suspect]
     Active Substance: LENALIDOMIDE
     Dosage: FREQUENCY: QOD
     Route: 048
  3. LENALIDOMIDE [Suspect]
     Active Substance: LENALIDOMIDE
     Dosage: TAKE 1 CAPSULE BY MOUTH EVERY DAY ON DAYS 1-14 OF EACH 21 DAY CYCLE
     Route: 048
     Dates: start: 20230828

REACTIONS (12)
  - Paranoia [Not Recovered/Not Resolved]
  - Fatigue [Not Recovered/Not Resolved]
  - Bowel movement irregularity [Not Recovered/Not Resolved]
  - Brain fog [Not Recovered/Not Resolved]
  - Off label use [Unknown]
  - Constipation [Not Recovered/Not Resolved]
  - Platelet count decreased [Recovered/Resolved]
  - White blood cell count decreased [Recovered/Resolved]
  - Hordeolum [Recovered/Resolved]
  - Urticaria [Recovered/Resolved]
  - Rash [Not Recovered/Not Resolved]
  - Vaginal haemorrhage [Not Recovered/Not Resolved]
